FAERS Safety Report 18097456 (Version 1)
Quarter: 2020Q3

REPORT INFORMATION
  Report Type: Spontaneous
  Country: US (occurrence: US)
  Receive Date: 20200731
  Receipt Date: 20200731
  Transmission Date: 20201103
  Serious: Yes (Hospitalization)
  Sender: FDA-Public Use
  Company Number: None

PATIENT
  Age: 57 Year
  Sex: Female

DRUGS (22)
  1. SULFASALAZINE DELAYED?RELEASE [Concomitant]
     Active Substance: SULFASALAZINE
     Dates: start: 20170628
  2. HUMIRA [Suspect]
     Active Substance: ADALIMUMAB
     Indication: RHEUMATOID ARTHRITIS
     Dosage: ?          OTHER FREQUENCY:EVERY 2 WEEKS;?
     Route: 058
     Dates: start: 20181214
  3. TIZANIDINE. [Concomitant]
     Active Substance: TIZANIDINE
     Dates: start: 20170628
  4. FOLIC ACID. [Concomitant]
     Active Substance: FOLIC ACID
     Dates: start: 20170628
  5. PLAQUENIL [Concomitant]
     Active Substance: HYDROXYCHLOROQUINE SULFATE
     Dates: start: 20170628
  6. CYMBALTA [Concomitant]
     Active Substance: DULOXETINE HYDROCHLORIDE
     Dates: start: 20170628
  7. METHOCARBAM [Concomitant]
     Active Substance: METHOCARBAMOL
     Dates: start: 20170628
  8. METHOTREXATE. [Concomitant]
     Active Substance: METHOTREXATE
     Dates: start: 20170628
  9. CALCIUM/D [Concomitant]
     Dates: start: 20170628
  10. HYDROMORPHON [Concomitant]
     Active Substance: HYDROMORPHONE
     Dates: start: 20200625
  11. METFORMIN [Concomitant]
     Active Substance: METFORMIN HYDROCHLORIDE
     Dates: start: 20170628
  12. NEURONTIN [Concomitant]
     Active Substance: GABAPENTIN
     Dates: start: 20170628
  13. POTASSIUM [Concomitant]
     Active Substance: POTASSIUM
     Dates: start: 20170628
  14. DULOXETINE. [Concomitant]
     Active Substance: DULOXETINE
     Dates: start: 20200623
  15. METOPROLOL TARTRATE. [Concomitant]
     Active Substance: METOPROLOL TARTRATE
     Dates: start: 20170628
  16. ONDANSETRON [Concomitant]
     Active Substance: ONDANSETRON
     Dates: start: 20200727
  17. PRAVASTATIN. [Concomitant]
     Active Substance: PRAVASTATIN
     Dates: start: 20170628
  18. VITAMIN B COMPLEX [Concomitant]
     Active Substance: CYANOCOBALAMIN\DEXPANTHENOL\NIACINAMIDE\PYRIDOXINE HYDROCHLORIDE\RIBOFLAVIN 5^-PHOSPHATE SODIUM\THIAMINE HYDROCHLORIDE\VITAMIN B COMPLEX
     Dates: start: 20170628
  19. FUROSEMIDE. [Concomitant]
     Active Substance: FUROSEMIDE
     Dates: start: 20170628
  20. HYDRALAZINE [Concomitant]
     Active Substance: HYDRALAZINE HYDROCHLORIDE
     Dates: start: 20170628
  21. OXYCODONE [Concomitant]
     Active Substance: OXYCODONE
     Dates: start: 20170628
  22. SYNTHROID [Concomitant]
     Active Substance: LEVOTHYROXINE SODIUM
     Dates: start: 20170628

REACTIONS (2)
  - Pancreatitis [None]
  - Asthenia [None]
